FAERS Safety Report 14906750 (Version 1)
Quarter: 2018Q2

REPORT INFORMATION
  Report Type: Spontaneous
  Country: US (occurrence: US)
  Receive Date: 20180517
  Receipt Date: 20180517
  Transmission Date: 20180711
  Serious: No
  Sender: FDA-Public Use
  Company Number: US-SA-2014SA002498

PATIENT
  Age: 70 Year
  Sex: Female

DRUGS (2)
  1. SOLOSTAR [Suspect]
     Active Substance: DEVICE
     Indication: TYPE 2 DIABETES MELLITUS
     Dosage: FROM 1.5 YEARS AGO AGO.
  2. LANTUS SOLOSTAR [Suspect]
     Active Substance: INSULIN GLARGINE
     Indication: TYPE 2 DIABETES MELLITUS
     Dosage: STARTED FROM 1.5 YEARS AGO?DOSE: 40-50 UNITS DALIY
     Route: 058

REACTIONS (3)
  - Influenza [Unknown]
  - Blood glucose increased [Unknown]
  - Feeling abnormal [Unknown]
